FAERS Safety Report 7317142-3 (Version None)
Quarter: 2011Q1

REPORT INFORMATION
  Report Type: 
  Country: None (occurrence: None)
  Receive Date: 20110226
  Receipt Date: 20100930
  Transmission Date: 20110831
  Serious: No
  Sender: FDA-Public Use
  Company Number: US-ALLERGAN-1012619US

PATIENT
  Sex: Female

DRUGS (2)
  1. BOTOX COSMETIC [Suspect]
     Indication: SKIN WRINKLING
     Dosage: UNK UNITS, SINGLE
     Dates: start: 20100728, end: 20100728
  2. BOTOX COSMETIC [Suspect]
     Dosage: UNK UNITS, SINGLE
     Dates: start: 20100101, end: 20100101

REACTIONS (2)
  - INJECTION SITE REACTION [None]
  - FACIAL PARESIS [None]
